FAERS Safety Report 11953851 (Version 2)
Quarter: 2020Q2

REPORT INFORMATION
  Report Type: Spontaneous
  Country: CA (occurrence: CA)
  Receive Date: 20160125
  Receipt Date: 20200621
  Transmission Date: 20200713
  Serious: Yes (Other)
  Sender: FDA-Public Use
  Company Number: CA-009507513-1601CAN007691

PATIENT
  Age: 77 Year
  Sex: Female
  Weight: 64.85 kg

DRUGS (18)
  1. ATIVAN [Concomitant]
     Active Substance: LORAZEPAM
     Dosage: STRENGTH: 2 MG; 1 TABLET EVERY DAY AT BEDTIME FOR 90 DAYS QUANTITY: 90 TABLET(S) REFILLS:4
     Dates: start: 20110321
  2. DILTIAZEM. [Concomitant]
     Active Substance: DILTIAZEM
     Dosage: 1 CAPSULE 1 TIME DAILY FOR 30 DAYS QUANTITY: 60 CAPSULE(S) REFILLS: 1
     Dates: start: 20141222
  3. DOCUSATE CALCIUM. [Concomitant]
     Active Substance: DOCUSATE CALCIUM
     Dosage: 240 MILLIGRAM, 1 TABLET ONCE DAILY FOR 90 DAYS QUANTITY: 90 TABLETS, REFILLS: 5; (FORMULATION ALSO R
     Dates: start: 20121009
  4. INVANZ [Suspect]
     Active Substance: ERTAPENEM SODIUM
     Indication: PSEUDOMONAS INFECTION
     Dosage: 1 GRAM, ONCE DAILY(OD); FORMULATOIN REPORTED AS SOLUTION FOR INJECTION
     Route: 042
     Dates: start: 20150430, end: 20150507
  5. BETADERM [Concomitant]
     Active Substance: BETAMETHASONE VALERATE
     Dosage: QUANTITY: 60G; REFILLS: 3
     Dates: start: 20131216
  6. LOZIDE [Concomitant]
     Active Substance: INDAPAMIDE
     Dosage: 1 TABLET 1 TIME DAILY FOR 30 DAYS QUANTITY: 60 TABLET(S) REFILLS: 1
     Dates: start: 20150209
  7. CODEINE PHOSPHATE [Concomitant]
     Active Substance: CODEINE PHOSPHATE
     Dosage: 1 TABLET UP TO 3X/ DAY TO AUGMENT TYLENOL 3 TABS X 180 MITTTE 90 Q 30 DAYS QUANTITY: 180 TABLET(S)
     Dates: start: 20141110
  8. GRAVOL [Concomitant]
     Active Substance: DIMENHYDRINATE
     Dosage: 1 MILLILITER, 1 TIME DAILY, PRN FOR 30 DAY AS DIRECTED QUANTITY: 20 BOTTLE(S) REFILLS: 1
     Dates: start: 20150209
  9. LOSEC [Concomitant]
     Active Substance: OMEPRAZOLE
     Dosage: 20 MILLIGRAM, 1 TABLET, 2 TIMES DAILY FOR 90 DAYS QUANTITY: 180 TABLET(S) REFILLS: 6
     Dates: start: 20110321
  10. TYLENOL WITH CODEINE [Concomitant]
     Active Substance: ACETAMINOPHEN\CODEINE PHOSPHATE
     Dosage: 1 TABLET 1 TIME DAILY FOR 180 DAYS QUANTITY: 180 TABLET(S)
     Dates: start: 20110428
  11. CYANOCOBALAMIN. [Concomitant]
     Active Substance: CYANOCOBALAMIN
     Dosage: VIAL 1 MILLILITER, OTHER QUANTITY: 0 ML
     Dates: start: 20110321
  12. DERMOTIC [Concomitant]
     Active Substance: FLUOCINOLONE ACETONIDE
     Dosage: QUANTITY:20 ML; REFILLS:2
     Dates: start: 20121009
  13. ATIVAN [Concomitant]
     Active Substance: LORAZEPAM
     Dosage: 1 TABLET, PRN; QUANTITY: 90 TABLETS
     Dates: start: 20140708
  14. SULCRATE [Concomitant]
     Active Substance: SUCRALFATE
     Dosage: 1 GRAM, 1 TABLET THREE TIMES DAILY; FOR 90 DAYS QUANTITY: 270 TABLET(S) REFILLS: 6
     Dates: start: 20111122
  15. FUCIDIN (FUSIDATE SODIUM) [Concomitant]
     Active Substance: FUSIDATE SODIUM
     Dosage: 1 APPLICATION 3 TIMES DAILY FOR 30 DAYS QUANTITY: 30 GRAM(S),
     Dates: start: 20140818
  16. TYLENOL WITH CODEINE [Concomitant]
     Active Substance: ACETAMINOPHEN\CODEINE PHOSPHATE
     Dosage: 2 TABLETS EVERY 6 HOURS FOR 60 DAYS QUANTITY: 480 TABLET(S)
     Dates: start: 20140825
  17. FINACEA [Concomitant]
     Active Substance: AZELAIC ACID
     Dosage: APPLY 2X/ DAY QUANTITY: 1 TUBE(S)
     Dates: start: 20150413
  18. METROGEL (METRONIDAZOLE) [Concomitant]
     Dosage: APPLY HS; QUANTITY: 1 TUBE (S) REFILLS: 2
     Dates: start: 20140916

REACTIONS (15)
  - Agitation [Recovered/Resolved]
  - Colonoscopy [Recovered/Resolved]
  - Hepatitis B immunisation [Recovered/Resolved]
  - Varicella immunisation [Recovered/Resolved]
  - Radiculopathy [Recovered/Resolved]
  - Generalised anxiety disorder [Recovered/Resolved]
  - Hepatitis A immunisation [Recovered/Resolved]
  - Confusional state [Recovered/Resolved]
  - Continuous positive airway pressure [Recovered/Resolved]
  - Disorientation [Recovered/Resolved]
  - Headache [Recovered/Resolved]
  - Pain [Recovered/Resolved]
  - Sleep apnoea syndrome [Recovered/Resolved]
  - Hypertension [Recovered/Resolved]
  - Intervertebral disc degeneration [Recovered/Resolved]

NARRATIVE: CASE EVENT DATE: 20150505
